FAERS Safety Report 10072089 (Version 1)
Quarter: 2014Q2

REPORT INFORMATION
  Report Type: Spontaneous
  Country: US (occurrence: None)
  Receive Date: 20140410
  Receipt Date: 20140410
  Transmission Date: 20141212
  Serious: Yes (Other)
  Sender: FDA-Public Use
  Company Number: None

PATIENT
  Age: 49 Year
  Sex: Female
  Weight: 113.4 kg

DRUGS (4)
  1. NEXIUM [Suspect]
     Indication: COUGH
     Dosage: 2 PILLS
     Route: 048
     Dates: start: 20131220, end: 20140220
  2. THYROXINE SODIUM 150 MCG [Concomitant]
  3. PAXIL [Concomitant]
  4. VITAMIN D3 [Concomitant]

REACTIONS (2)
  - Bone pain [None]
  - Tooth fracture [None]
